FAERS Safety Report 11566796 (Version 1)
Quarter: 2015Q3

REPORT INFORMATION
  Report Type: Spontaneous
  Country: US (occurrence: US)
  Receive Date: 20150916
  Receipt Date: 20150916
  Transmission Date: 20151125
  Serious: No
  Sender: FDA-Public Use
  Company Number: US-ELI_LILLY_AND_COMPANY-US200906005740

PATIENT
  Age: 79 Year
  Sex: Female

DRUGS (4)
  1. MULTIVITAMIN [Concomitant]
     Active Substance: VITAMINS
  2. CALCIUM [Concomitant]
     Active Substance: CALCIUM
  3. FORTEO [Suspect]
     Active Substance: TERIPARATIDE
     Dosage: UNK, UNK
     Dates: start: 20090616
  4. FISH OIL [Concomitant]
     Active Substance: FISH OIL

REACTIONS (7)
  - Heart rate increased [Unknown]
  - Fear [Unknown]
  - Back pain [Unknown]
  - Dizziness [Unknown]
  - Headache [Unknown]
  - Pain [Unknown]
  - Injection site haemorrhage [Unknown]

NARRATIVE: CASE EVENT DATE: 200906
